FAERS Safety Report 8126341-2 (Version None)
Quarter: 2012Q1

REPORT INFORMATION
  Report Type: 
  Country: None (occurrence: None)
  Receive Date: 20120209
  Receipt Date: 20120131
  Transmission Date: 20120608
  Serious: Yes (Other)
  Sender: FDA-Public Use
  Company Number: IS-ASTRAZENECA-2012SE06686

PATIENT

DRUGS (1)
  1. ROSUVASTATIN [Suspect]
     Route: 048

REACTIONS (1)
  - LIVER INJURY [None]
